FAERS Safety Report 7125875-7 (Version None)
Quarter: 2010Q4

REPORT INFORMATION
  Report Type: 
  Country: None (occurrence: None)
  Receive Date: 20101129
  Receipt Date: 20101104
  Transmission Date: 20110411
  Serious: No
  Sender: FDA-Public Use
  Company Number: US-MYLANLABS-2010S1017781

PATIENT
  Age: 44 Year
  Sex: Female
  Weight: 68.04 kg

DRUGS (2)
  1. VALACYCLOVIR HYDROCHLORIDE [Suspect]
     Indication: GENITAL HERPES
     Route: 048
     Dates: start: 20100922
  2. VITAMINS [Concomitant]

REACTIONS (3)
  - DRUG INEFFECTIVE [None]
  - GENITAL HERPES [None]
  - PRODUCT SUBSTITUTION ISSUE [None]
